FAERS Safety Report 12580893 (Version 2)
Quarter: 2016Q3

REPORT INFORMATION
  Report Type: Spontaneous
  Country: GB (occurrence: GB)
  Receive Date: 20160721
  Receipt Date: 20160726
  Transmission Date: 20161109
  Serious: Yes (Other)
  Sender: FDA-Public Use
  Company Number: GB-ABBVIE-16K-167-1665173-00

PATIENT
  Age: 49 Year
  Sex: Male

DRUGS (4)
  1. TENOFOVIR DISOPROXIL FUMARATE. [Suspect]
     Active Substance: TENOFOVIR DISOPROXIL FUMARATE
     Indication: HIV INFECTION
     Route: 048
  2. NORVIR [Suspect]
     Active Substance: RITONAVIR
     Indication: HIV INFECTION
     Route: 048
  3. DARUNAVIR [Suspect]
     Active Substance: DARUNAVIR
     Indication: HIV INFECTION
     Route: 048
  4. RALTEGRAVIR. [Suspect]
     Active Substance: RALTEGRAVIR
     Indication: HIV INFECTION
     Route: 048

REACTIONS (6)
  - Malaise [Unknown]
  - Seizure [Unknown]
  - Activities of daily living impaired [Unknown]
  - Vomiting [Unknown]
  - Viral load increased [Unknown]
  - Hypersomnia [Unknown]

NARRATIVE: CASE EVENT DATE: 201606
